FAERS Safety Report 4627681-1 (Version None)
Quarter: 2005Q2

REPORT INFORMATION
  Report Type: 
  Country: None (occurrence: None)
  Receive Date: 20050406
  Receipt Date: 20041104
  Transmission Date: 20051028
  Serious: Yes (Death)
  Sender: FDA-Public Use
  Company Number: 200413412JP

PATIENT
  Age: 47 Year
  Sex: Female
  Weight: 71.4 kg

DRUGS (6)
  1. TAXOTERE [Suspect]
     Indication: BREAST CANCER
     Route: 041
     Dates: start: 20041020, end: 20041020
  2. TAXOTERE [Suspect]
     Indication: METASTASES TO LIVER
     Route: 041
     Dates: start: 20041020, end: 20041020
  3. SEROTONE [Concomitant]
     Indication: ANTIEMETIC SUPPORTIVE CARE
     Route: 041
     Dates: start: 20041020, end: 20041020
  4. PRIMPERAN TAB [Concomitant]
     Indication: ANTIEMETIC SUPPORTIVE CARE
     Route: 041
     Dates: start: 20041020, end: 20041020
  5. HYSRON [Concomitant]
     Indication: BREAST CANCER
  6. HYSRON [Concomitant]
     Indication: METASTASES TO LIVER

REACTIONS (13)
  - ANOREXIA [None]
  - BLOOD BILIRUBIN INCREASED [None]
  - DISEASE PROGRESSION [None]
  - DISSEMINATED INTRAVASCULAR COAGULATION [None]
  - DYSPNOEA [None]
  - GENERAL PHYSICAL HEALTH DETERIORATION [None]
  - HAEMOGLOBIN DECREASED [None]
  - HEPATITIS FULMINANT [None]
  - LIVER DISORDER [None]
  - MALAISE [None]
  - METASTASES TO BONE [None]
  - MULTI-ORGAN FAILURE [None]
  - PLATELET COUNT DECREASED [None]
